FAERS Safety Report 14590410 (Version 2)
Quarter: 2018Q2

REPORT INFORMATION
  Report Type: Spontaneous
  Country: US (occurrence: US)
  Receive Date: 20180302
  Receipt Date: 20180504
  Transmission Date: 20180711
  Serious: No
  Sender: FDA-Public Use
  Company Number: US-PFIZER INC-2018089579

PATIENT

DRUGS (2)
  1. UBIDECARENONE [Suspect]
     Active Substance: UBIDECARENONE
     Dosage: UNK
  2. LIPITOR [Suspect]
     Active Substance: ATORVASTATIN CALCIUM
     Dosage: UNK

REACTIONS (2)
  - Arthritis [Unknown]
  - Muscle spasms [Unknown]
